FAERS Safety Report 6121019-9 (Version None)
Quarter: 2009Q1

REPORT INFORMATION
  Report Type: 
  Country: None (occurrence: None)
  Receive Date: 20090317
  Receipt Date: 20090311
  Transmission Date: 20090719
  Serious: Yes (Death, Other)
  Sender: FDA-Public Use
  Company Number: PHHY2009CN09012

PATIENT
  Age: 14 Year
  Sex: Male
  Weight: 33 kg

DRUGS (4)
  1. CYCLOSPORINE [Suspect]
     Indication: APLASTIC ANAEMIA
     Dosage: 100 MG/DAY
     Route: 048
     Dates: start: 20070728, end: 20070805
  2. STEROIDS NOS [Concomitant]
     Indication: APLASTIC ANAEMIA
     Dosage: UNK
     Dates: start: 20070701
  3. PREDNISONE [Concomitant]
     Indication: APLASTIC ANAEMIA
     Dosage: 30 MG/DAY
     Dates: start: 20070701
  4. FUFANG ZAOFAN WAN [Concomitant]

REACTIONS (18)
  - ABDOMINAL PAIN [None]
  - BLOOD BLISTER [None]
  - DYSPNOEA [None]
  - FACE OEDEMA [None]
  - FAECES DISCOLOURED [None]
  - HAEMATURIA [None]
  - HAEMORRHAGE INTRACRANIAL [None]
  - HEADACHE [None]
  - LOSS OF CONSCIOUSNESS [None]
  - MYOCARDITIS [None]
  - NUCHAL RIGIDITY [None]
  - PALPITATIONS [None]
  - PHARYNGEAL OEDEMA [None]
  - PUPILS UNEQUAL [None]
  - PYREXIA [None]
  - RASH PAPULAR [None]
  - TACHYCARDIA [None]
  - VARICELLA [None]
